FAERS Safety Report 14963144 (Version 2)
Quarter: 2018Q3

REPORT INFORMATION
  Report Type: Report from Study
  Country: FR (occurrence: FR)
  Receive Date: 20180601
  Receipt Date: 20180704
  Transmission Date: 20181010
  Serious: Yes (Death, Life-Threatening, Hospitalization, Disabling)
  Sender: FDA-Public Use
  Company Number: FR-ROCHE-1960489

PATIENT
  Age: 67 Year
  Sex: Male
  Weight: 61 kg

DRUGS (17)
  1. PARACETAMOL [Concomitant]
     Active Substance: ACETAMINOPHEN
     Indication: PYREXIA
     Route: 065
     Dates: start: 20170630, end: 20170703
  2. CISPLATIN. [Suspect]
     Active Substance: CISPLATIN
     Indication: NON-SMALL CELL LUNG CANCER STAGE IV
     Dosage: DATE OF MOST RECENT DOSE: 12/MAY/2017, LAST DOSE: 128 MG (PRIOR TO DIARRHEA, HYPOKALEMIA AND PANCYTO
     Route: 042
     Dates: start: 20170303
  3. METOCLOPRAMIDE. [Concomitant]
     Active Substance: METOCLOPRAMIDE
     Indication: NAUSEA
     Route: 065
     Dates: start: 20170701
  4. OFLOXACINE [Concomitant]
     Active Substance: OFLOXACIN
     Indication: PYREXIA
     Route: 065
     Dates: start: 20170630, end: 20170701
  5. VITAMINE B12 ROCHE [Concomitant]
     Indication: PROPHYLAXIS
     Route: 065
     Dates: start: 20170223, end: 20170712
  6. DAFALGAN [Concomitant]
     Active Substance: ACETAMINOPHEN
     Indication: NEUROPATHY PERIPHERAL
     Route: 065
     Dates: start: 20170320
  7. OXAZEPAM. [Concomitant]
     Active Substance: OXAZEPAM
     Indication: INSOMNIA
     Route: 065
     Dates: start: 20170321
  8. PEMETREXED. [Suspect]
     Active Substance: PEMETREXED
     Indication: NON-SMALL CELL LUNG CANCER STAGE IV
     Dosage: DATE OF MOST RECENT DOSE (850 MG) PRIOR TO DIARRHEA AND PANCYTOPENIA: 16/JUN/2017?DATE OF MOST RECEN
     Route: 042
     Dates: start: 20170303
  9. CEFOTAXIME [Concomitant]
     Active Substance: CEFOTAXIME SODIUM
     Indication: PYREXIA
     Route: 065
     Dates: start: 20170630, end: 20170703
  10. FRAGMINE [Concomitant]
     Active Substance: DALTEPARIN SODIUM
     Indication: PROPHYLAXIS
     Route: 065
     Dates: start: 20170320
  11. PREGABALINE [Concomitant]
     Active Substance: PREGABALIN
     Indication: INSOMNIA
     Route: 065
     Dates: start: 20170321
  12. CEFTRIAXONE. [Concomitant]
     Active Substance: CEFTRIAXONE
  13. PREDNISONE. [Concomitant]
     Active Substance: PREDNISONE
  14. ATEZOLIZUMAB. [Suspect]
     Active Substance: ATEZOLIZUMAB
     Indication: NON-SMALL CELL LUNG CANCER STAGE IV
     Dosage: DATE OF MOST RECENT DOSE: 16/JUN/2017, LAST DOSE: 1200 MG, CYCLE 5 (PRIOR TO DIARRHEA AND PANCYTOPEN
     Route: 042
     Dates: start: 20170303
  15. FILGRASTIM [Concomitant]
     Active Substance: FILGRASTIM
     Indication: NEUTROPENIA
     Route: 065
     Dates: start: 20170630, end: 20170630
  16. PIPERACILLIN/TAZOBACTAM [Concomitant]
     Active Substance: PIPERACILLIN SODIUM\TAZOBACTAM SODIUM
     Indication: PYREXIA
     Route: 065
     Dates: start: 20170703
  17. ACIDE FOLIQUE [Concomitant]
     Active Substance: FOLIC ACID
     Indication: PROPHYLAXIS
     Route: 065
     Dates: start: 20170223, end: 20170712

REACTIONS (4)
  - Hypomagnesaemia [Recovered/Resolved]
  - Diarrhoea [Recovered/Resolved]
  - Pancytopenia [Not Recovered/Not Resolved]
  - Hypokalaemia [Recovered/Resolved]

NARRATIVE: CASE EVENT DATE: 20170420
